FAERS Safety Report 25772437 (Version 1)
Quarter: 2025Q3

REPORT INFORMATION
  Report Type: Spontaneous
  Country: US (occurrence: US)
  Receive Date: 20250908
  Receipt Date: 20250908
  Transmission Date: 20251020
  Serious: No
  Sender: ACCORD
  Company Number: US-Accord-460768

PATIENT
  Sex: Male
  Weight: 99.79 kg

DRUGS (2)
  1. EPLERENONE [Suspect]
     Active Substance: EPLERENONE
     Indication: Hypertension
     Dates: start: 202411
  2. EPLERENONE [Suspect]
     Active Substance: EPLERENONE
     Indication: Hypertension

REACTIONS (1)
  - Drug ineffective [Unknown]

NARRATIVE: CASE EVENT DATE: 20240101
